FAERS Safety Report 11205557 (Version 1)
Quarter: 2015Q2

REPORT INFORMATION
  Report Type: Spontaneous
  Country: US (occurrence: US)
  Receive Date: 20150622
  Receipt Date: 20150622
  Transmission Date: 20150821
  Serious: No
  Sender: FDA-Public Use
  Company Number: US-PFIZER INC-2015203451

PATIENT
  Age: 77 Year
  Sex: Female
  Weight: 63 kg

DRUGS (1)
  1. IBRANCE [Suspect]
     Active Substance: PALBOCICLIB
     Dosage: UNK

REACTIONS (6)
  - Weight decreased [Unknown]
  - Haemoglobin abnormal [Unknown]
  - Tumour marker increased [Unknown]
  - Feeding disorder [Unknown]
  - Malaise [Unknown]
  - Vomiting [Unknown]
